FAERS Safety Report 10948756 (Version 1)
Quarter: 2015Q1

REPORT INFORMATION
  Report Type: Spontaneous
  Country: SE (occurrence: SE)
  Receive Date: 20150324
  Receipt Date: 20150324
  Transmission Date: 20150721
  Serious: Yes (Hospitalization)
  Sender: FDA-Public Use
  Company Number: SE-SA-2015SA034482

PATIENT
  Age: 72 Year
  Sex: Female

DRUGS (13)
  1. LASIX [Suspect]
     Active Substance: FUROSEMIDE
     Route: 065
     Dates: end: 20141229
  2. SERTRALINE [Concomitant]
     Active Substance: SERTRALINE HYDROCHLORIDE
     Route: 065
  3. SPIRIVA [Concomitant]
     Active Substance: TIOTROPIUM BROMIDE MONOHYDRATE
     Dosage: POWDER INHALATION, HARD CAPSULE
     Route: 048
  4. SYMBICORT [Concomitant]
     Active Substance: BUDESONIDE\FORMOTEROL FUMARATE DIHYDRATE
     Dosage: POWDER INHALATION
     Route: 048
  5. TREO COMP [Concomitant]
     Route: 065
  6. LACTULOSE. [Concomitant]
     Active Substance: LACTULOSE
     Route: 065
  7. LATANOPROST. [Concomitant]
     Active Substance: LATANOPROST
     Dosage: DOSAGE TEXT: 1 TO NIGHT BILATERALLY
     Route: 065
  8. ACETYLCYSTEINE. [Concomitant]
     Active Substance: ACETYLCYSTEINE
     Route: 065
  9. ATENOLOL. [Suspect]
     Active Substance: ATENOLOL
     Route: 065
  10. HYDROCHLOROTHIAZIDE/LOSARTAN [Suspect]
     Active Substance: HYDROCHLOROTHIAZIDE\LOSARTAN
     Dosage: 100MG/25 MG: 1X1
     Route: 065
     Dates: end: 20141229
  11. SIMVASTATIN. [Concomitant]
     Active Substance: SIMVASTATIN
  12. VENTOLINE DISKUS [Concomitant]
     Route: 065
  13. LEVAXIN [Concomitant]
     Active Substance: LEVOTHYROXINE SODIUM
     Dosage: 1X1, EXCEPT ON TUESDAY AND FRIDAY
     Route: 065

REACTIONS (6)
  - Fatigue [Recovering/Resolving]
  - Decreased appetite [Recovering/Resolving]
  - Bradycardia [Recovering/Resolving]
  - Malaise [Recovering/Resolving]
  - Hypokalaemia [Recovering/Resolving]
  - Constipation [Recovering/Resolving]

NARRATIVE: CASE EVENT DATE: 20141229
